FAERS Safety Report 18180248 (Version 1)
Quarter: 2020Q3

REPORT INFORMATION
  Report Type: Spontaneous
  Country: US (occurrence: US)
  Receive Date: 20200821
  Receipt Date: 20200821
  Transmission Date: 20201103
  Serious: No
  Sender: FDA-Public Use
  Company Number: US-DRREDDYS-USA/USA/20/0126063

PATIENT
  Age: 21 Year
  Sex: Male

DRUGS (4)
  1. BORTEZOMIB. [Suspect]
     Active Substance: BORTEZOMIB
     Indication: C3 GLOMERULOPATHY
     Dosage: 1.6MG TWICE WEEKLY FOR TWO WEEKS, FOLLOWED 1W BREAK
  2. BORTEZOMIB. [Suspect]
     Active Substance: BORTEZOMIB
  3. DEXAMETHASONE SODIUM PHOSPHATE INJECTION, 4 MG/ML [Concomitant]
     Active Substance: DEXAMETHASONE SODIUM PHOSPHATE
     Indication: C3 GLOMERULOPATHY
     Dosage: TAKEN PRIOR TO EACH BORTEZOMIB TREATMENT
  4. LISINOPRIL. [Concomitant]
     Active Substance: LISINOPRIL
     Indication: HYPERTENSION

REACTIONS (3)
  - Decreased appetite [Unknown]
  - Nausea [Unknown]
  - Product use in unapproved indication [Unknown]
